FAERS Safety Report 7106719-6 (Version None)
Quarter: 2010Q4

REPORT INFORMATION
  Report Type: 
  Country: None (occurrence: None)
  Receive Date: 20101116
  Receipt Date: 20100819
  Transmission Date: 20110411
  Serious: No
  Sender: FDA-Public Use
  Company Number: US-ABBOTT-10P-163-0664897-00

PATIENT
  Sex: Male

DRUGS (2)
  1. SIMCOR [Suspect]
     Indication: DYSLIPIDAEMIA
     Dosage: IN THE MORNING
  2. UNKNOWN PAIN PILL [Concomitant]
     Indication: NECK PAIN

REACTIONS (1)
  - PRURITUS GENERALISED [None]
